FAERS Safety Report 4403445-9 (Version None)
Quarter: 2004Q3

REPORT INFORMATION
  Report Type: 
  Country: None (occurrence: None)
  Receive Date: 20040716
  Receipt Date: 20040712
  Transmission Date: 20050211
  Serious: Yes (Hospitalization)
  Sender: FDA-Public Use
  Company Number: US-JNJFOC-20040603740

PATIENT
  Age: 13 Year
  Sex: Male
  Weight: 40.8237 kg

DRUGS (12)
  1. EXTRA STRENGTH TYLENOL (ACETAMINOPHEN) GELCAPS [Suspect]
     Indication: HEADACHE
     Dosage: 1000 MG, 2 IN 1 DAY, ORAL
     Route: 048
     Dates: start: 20040609, end: 20040609
  2. PREDNISONE TAB [Concomitant]
  3. NORVASC [Concomitant]
  4. LABETOLOL (LABETOLOL) [Concomitant]
  5. ENALAPRIL MALEATE [Concomitant]
  6. SODIUM BICARBONATE IN PLASTIC CONTAINER [Concomitant]
  7. EPOGEN [Concomitant]
  8. LIPITOR [Concomitant]
  9. NEORAL [Concomitant]
  10. MAGNESIUM OXIDE (MAGNESIUM OXIDE) [Concomitant]
  11. FERROUS SULFATE TAB [Concomitant]
  12. CELLCEPT [Concomitant]

REACTIONS (2)
  - CONVULSION [None]
  - LOSS OF CONSCIOUSNESS [None]
